FAERS Safety Report 13337892 (Version 1)
Quarter: 2017Q1

REPORT INFORMATION
  Report Type: Spontaneous
  Country: US (occurrence: US)
  Receive Date: 20170315
  Receipt Date: 20170315
  Transmission Date: 20170428
  Serious: Yes (Death, Hospitalization)
  Sender: FDA-Public Use
  Company Number: None

PATIENT
  Age: 9 Year
  Sex: Male
  Weight: 35.7 kg

DRUGS (5)
  1. CYTARABINE. [Suspect]
     Active Substance: CYTARABINE
     Dates: end: 20170218
  2. ONCASPAR [Suspect]
     Active Substance: PEGASPARGASE
     Dosage: TOTAL DOSE ADMINISTERED - 3000 UNIT
     Dates: end: 20170221
  3. VINCRISTINE SULFATE. [Suspect]
     Active Substance: VINCRISTINE SULFATE
     Dates: end: 20170306
  4. DEXAMETHASONE. [Suspect]
     Active Substance: DEXAMETHASONE
     Dates: end: 20170310
  5. METHOTREXATE. [Suspect]
     Active Substance: METHOTREXATE
     Dates: end: 20170227

REACTIONS (17)
  - Constipation [None]
  - Blood bilirubin increased [None]
  - Pancreatic injury [None]
  - Vomiting [None]
  - Feeling cold [None]
  - Acute kidney injury [None]
  - Retroperitoneal haematoma [None]
  - Liver injury [None]
  - Hypofibrinogenaemia [None]
  - Abdominal compartment syndrome [None]
  - Asthenia [None]
  - Coagulopathy [None]
  - Transaminases increased [None]
  - Abdominal pain [None]
  - Unresponsive to stimuli [None]
  - Dysstasia [None]
  - Haemorrhage intracranial [None]

NARRATIVE: CASE EVENT DATE: 20170310
